FAERS Safety Report 9445727 (Version 3)
Quarter: 2014Q2

REPORT INFORMATION
  Report Type: Spontaneous
  Country: FR (occurrence: FR)
  Receive Date: 20130807
  Receipt Date: 20140418
  Transmission Date: 20141212
  Serious: Yes (Hospitalization)
  Sender: FDA-Public Use
  Company Number: FR-BRISTOL-MYERS SQUIBB COMPANY-19151810

PATIENT
  Age: 50 Year
  Sex: Female

DRUGS (9)
  1. REYATAZ CAPS [Suspect]
     Indication: HIV INFECTION
     Route: 048
     Dates: start: 20130115, end: 20130127
  2. EPIRUBICIN [Suspect]
     Indication: INVASIVE LOBULAR BREAST CARCINOMA
     Dosage: 1 DF : 2MG/ML?SOLUTION FOR INFUSION
     Route: 041
     Dates: start: 20130115, end: 20130503
  3. ENDOXAN [Suspect]
     Indication: INVASIVE LOBULAR BREAST CARCINOMA
     Route: 042
     Dates: start: 20130118
  4. NORVIR [Suspect]
     Indication: HIV INFECTION
     Route: 048
     Dates: start: 20130115, end: 20130127
  5. TRUVADA [Suspect]
     Indication: HIV INFECTION
     Dosage: 1DF:1 TABLET
     Route: 048
     Dates: start: 20130115, end: 20130127
  6. VERAPAMIL [Concomitant]
     Indication: HYPERTENSION
     Route: 048
  7. COKENZEN [Concomitant]
     Indication: HYPERTENSION
     Dosage: CANDESARTAN CILEXETIL AT 8 MG + HYDROCHLOROTHIAZIDE 12.5 MG ?1DF:8MG/12.5MG
     Route: 048
  8. ATARAX [Concomitant]
     Dosage: 1.5 TABLETS IN THE MORNING AND 1 TABLET IN THE EVENING.
     Route: 048
  9. TAXOTERE [Concomitant]
     Dates: start: 20131223

REACTIONS (10)
  - Renal failure [Recovered/Resolved]
  - Cholestasis [Recovered/Resolved]
  - Pancytopenia [Unknown]
  - Mucosal inflammation [Unknown]
  - Hyponatraemia [Unknown]
  - Staphylococcus test positive [Unknown]
  - Oral herpes [Unknown]
  - Asthenia [Unknown]
  - General physical health deterioration [Unknown]
  - Headache [Unknown]
